FAERS Safety Report 5094476-7 (Version None)
Quarter: 2006Q3

REPORT INFORMATION
  Report Type: 
  Country: None (occurrence: None)
  Receive Date: 20060831
  Receipt Date: 20060824
  Transmission Date: 20061208
  Serious: Yes (Hospitalization)
  Sender: FDA-Public Use
  Company Number: US-ABBOTT-06P-163-0341993-00

PATIENT
  Sex: Female
  Weight: 59.928 kg

DRUGS (6)
  1. HUMIRA [Suspect]
     Indication: RHEUMATOID ARTHRITIS
     Route: 048
     Dates: start: 20030101
  2. PREDNISONE TAB [Concomitant]
     Indication: RHEUMATOID ARTHRITIS
     Route: 048
     Dates: start: 19760101
  3. LEFLUNOMIDE [Concomitant]
     Indication: RHEUMATOID ARTHRITIS
     Route: 048
     Dates: start: 20060401
  4. VICODIN [Concomitant]
     Indication: PAIN
     Route: 048
     Dates: start: 20030101
  5. DIAZEPAM [Concomitant]
     Indication: MUSCLE RELAXANT THERAPY
     Route: 048
     Dates: start: 20050101
  6. CALCIUM GLUCONATE [Concomitant]
     Indication: BONE DENSITY DECREASED
     Route: 048

REACTIONS (2)
  - INTERVERTEBRAL DISC COMPRESSION [None]
  - SPINAL CORD COMPRESSION [None]
